FAERS Safety Report 18534759 (Version 2)
Quarter: 2021Q1

REPORT INFORMATION
  Report Type: Spontaneous
  Country: JP (occurrence: JP)
  Receive Date: 20201123
  Receipt Date: 20210119
  Transmission Date: 20210419
  Serious: Yes (Hospitalization)
  Sender: FDA-Public Use
  Company Number: JP-MYLANLABS-2020M1094025

PATIENT
  Age: 28 Year
  Sex: Female

DRUGS (1)
  1. COUGHCODE N [Suspect]
     Active Substance: ACETAMINOPHEN\BROMISOVAL\DIHYDROCODEINE PHOSPHATE\DIPHENHYDRAMINE SALICYLATE\DYPHYLLINE\METHYLEPHEDRINE HYDROCHLORIDE, (+/-)-
     Indication: PRODUCT USED FOR UNKNOWN INDICATION
     Route: 048

REACTIONS (5)
  - Overdose [Unknown]
  - Acute hepatic failure [Recovering/Resolving]
  - Toxicity to various agents [Unknown]
  - Hepatic encephalopathy [Unknown]
  - Altered state of consciousness [Unknown]
